FAERS Safety Report 10932911 (Version 4)
Quarter: 2017Q1

REPORT INFORMATION
  Report Type: Spontaneous
  Country: US (occurrence: US)
  Receive Date: 20150320
  Receipt Date: 20170102
  Transmission Date: 20170428
  Serious: No
  Sender: FDA-Public Use
  Company Number: US-ASTRAZENECA-2013SE51915

PATIENT
  Age: 23172 Day
  Sex: Male
  Weight: 95.3 kg

DRUGS (10)
  1. BRILINTA [Concomitant]
     Active Substance: TICAGRELOR
     Indication: ANTICOAGULANT THERAPY
     Dates: start: 201605
  2. BYDUREON [Suspect]
     Active Substance: EXENATIDE
     Indication: TYPE 2 DIABETES MELLITUS
     Route: 058
     Dates: start: 201301
  3. METFORMIN HCL XR [Concomitant]
     Active Substance: METFORMIN HYDROCHLORIDE
     Indication: TYPE 2 DIABETES MELLITUS
  4. COQ10 [Concomitant]
     Active Substance: UBIDECARENONE
     Dosage: TWO TIMES A DAY
  5. VITAMIN B12 [Concomitant]
     Active Substance: CYANOCOBALAMIN
  6. BYDUREON [Suspect]
     Active Substance: EXENATIDE
     Indication: TYPE 2 DIABETES MELLITUS
     Route: 058
     Dates: start: 201602
  7. BYDUREON [Suspect]
     Active Substance: EXENATIDE
     Indication: TYPE 2 DIABETES MELLITUS
     Route: 058
     Dates: start: 20130115
  8. SIMCOR [Concomitant]
     Active Substance: NIACIN\SIMVASTATIN
  9. VITAMIN C1 [Concomitant]
  10. METFORMIN HCL XR [Concomitant]
     Active Substance: METFORMIN HYDROCHLORIDE
     Indication: TYPE 2 DIABETES MELLITUS

REACTIONS (10)
  - Injection site mass [Unknown]
  - Weight increased [Unknown]
  - Injection site pain [Not Recovered/Not Resolved]
  - Weight decreased [Recovered/Resolved]
  - Influenza [Unknown]
  - Blood glucose fluctuation [Unknown]
  - Injection site swelling [Recovering/Resolving]
  - Underdose [Unknown]
  - Product quality issue [Unknown]
  - Drug dose omission [Unknown]

NARRATIVE: CASE EVENT DATE: 20130115
